FAERS Safety Report 18677808 (Version 1)
Quarter: 2020Q4

REPORT INFORMATION
  Report Type: Spontaneous
  Country: IT (occurrence: IT)
  Receive Date: 20201229
  Receipt Date: 20201229
  Transmission Date: 20210114
  Serious: Yes (Other)
  Sender: FDA-Public Use
  Company Number: IT-TEVA-2020-IT-1862482

PATIENT
  Age: 75 Year
  Sex: Female

DRUGS (7)
  1. TRISENOX [Suspect]
     Active Substance: ARSENIC TRIOXIDE
     Indication: ACUTE LEUKAEMIA
     Dosage: UNIT DOSE : 0.15 MG
     Route: 042
     Dates: start: 20201204, end: 20201206
  2. EUTIROX [Concomitant]
     Active Substance: LEVOTHYROXINE SODIUM
  3. SELOKEN [Concomitant]
     Active Substance: METOPROLOL
  4. NORVASC [Concomitant]
     Active Substance: AMLODIPINE BESYLATE
  5. ZYLORIC [Concomitant]
     Active Substance: ALLOPURINOL
  6. VESANOID [Suspect]
     Active Substance: TRETINOIN
     Indication: ACUTE LEUKAEMIA
     Dosage: UNIT DOSE : 45 MG
     Route: 048
     Dates: start: 20201127, end: 20201206
  7. URBASON [Concomitant]
     Active Substance: METHYLPREDNISOLONE

REACTIONS (3)
  - Weight increased [Not Recovered/Not Resolved]
  - Differentiation syndrome [Not Recovered/Not Resolved]
  - Long QT syndrome [Not Recovered/Not Resolved]

NARRATIVE: CASE EVENT DATE: 20201206
